FAERS Safety Report 24178329 (Version 1)
Quarter: 2024Q3

REPORT INFORMATION
  Report Type: Spontaneous
  Country: JP (occurrence: JP)
  Receive Date: 20240806
  Receipt Date: 20240806
  Transmission Date: 20241016
  Serious: Yes (Other)
  Sender: ROCHE
  Company Number: JP-CHEPLA-2024008775

PATIENT
  Age: 5 Decade
  Sex: Male

DRUGS (7)
  1. BEVACIZUMAB [Suspect]
     Active Substance: BEVACIZUMAB
     Indication: Colorectal cancer metastatic
     Dosage: 7.5 MG/KG. SIX COURSES COMPLETED
     Route: 065
  2. BEVACIZUMAB [Suspect]
     Active Substance: BEVACIZUMAB
     Dosage: 7.5 MG/KG. SIX COURSES COMPLETED
     Route: 065
  3. CAPECITABINE [Suspect]
     Active Substance: CAPECITABINE
     Indication: Colorectal cancer metastatic
     Dosage: 3-WEEK REGIMEN  CONSISTING OF 2 WEEKS OF ORAL CAPECITABINE FOLLOWED BY A 1-WEEK REST PERIOD.
     Route: 048
  4. OXALIPLATIN [Concomitant]
     Active Substance: OXALIPLATIN
     Dosage: FOUR COURSES OF CAPOX WERE ADMINISTERED AS ADJUVANT THERAPY
  5. LEUCOVORIN [Concomitant]
     Active Substance: LEUCOVORIN\LEUCOVORIN CALCIUM
  6. FLUOROURACIL [Concomitant]
     Active Substance: FLUOROURACIL
     Dosage: 5FU BOLUS 400 MG/M2, 5FU CONTINUOUS?INFUSION 2400 MG/M2)
     Route: 042
  7. FLUOROURACIL [Concomitant]
     Active Substance: FLUOROURACIL
     Dosage: 5FU BOLUS 400 MG/M2, 5FU CONTINUOUS?INFUSION 2400 MG/M2)

REACTIONS (4)
  - Liver injury [Not Recovered/Not Resolved]
  - Drug intolerance [Unknown]
  - Alanine aminotransferase increased [Recovering/Resolving]
  - Aspartate aminotransferase increased [Recovering/Resolving]
